FAERS Safety Report 5496417-7 (Version None)
Quarter: 2007Q4

REPORT INFORMATION
  Report Type: 
  Country: None (occurrence: None)
  Receive Date: 20071023
  Receipt Date: 20071023
  Transmission Date: 20080405
  Serious: Yes (Hospitalization)
  Sender: FDA-Public Use
  Company Number: None

PATIENT
  Age: 56 Year
  Sex: Male

DRUGS (1)
  1. OXYCODONE HCL [Suspect]
     Indication: PAIN
     Dosage: 5MG PRN PO
     Route: 048
     Dates: start: 20070514, end: 20071022

REACTIONS (3)
  - LETHARGY [None]
  - RESPIRATORY DEPRESSION [None]
  - SEDATION [None]
